FAERS Safety Report 8182601-0 (Version None)
Quarter: 2012Q1

REPORT INFORMATION
  Report Type: 
  Country: None (occurrence: None)
  Receive Date: 20120305
  Receipt Date: 20120227
  Transmission Date: 20120608
  Serious: Yes (Other)
  Sender: FDA-Public Use
  Company Number: BR-SHIRE-ALL1-2012-01153

PATIENT
  Age: 61 Year
  Sex: Female

DRUGS (4)
  1. OSSOTRAT-D [Concomitant]
     Indication: PRODUCT USED FOR UNKNOWN INDICATION
     Dosage: UNK, 1X/DAY:QD
     Route: 065
     Dates: start: 20111201
  2. SIMVASTATIN [Concomitant]
     Indication: PRODUCT USED FOR UNKNOWN INDICATION
     Dosage: UNK, 1X/DAY:QD
     Route: 065
     Dates: start: 20111001
  3. NEOSALDINA                         /00631701/ [Concomitant]
     Indication: PRODUCT USED FOR UNKNOWN INDICATION
     Dosage: UNK, 1X/DAY:QD
     Route: 065
     Dates: start: 20110101
  4. MESALAMINE [Suspect]
     Indication: COLITIS ULCERATIVE
     Dosage: UNK, 1X/DAY:QD
     Route: 048
     Dates: start: 20110208

REACTIONS (6)
  - PRESYNCOPE [None]
  - CONSTIPATION [None]
  - ABDOMINAL DISTENSION [None]
  - BACK PAIN [None]
  - ARTHRALGIA [None]
  - ABDOMINAL PAIN UPPER [None]
